FAERS Safety Report 4391931-X (Version None)
Quarter: 2004Q3

REPORT INFORMATION
  Report Type: 
  Country: None (occurrence: None)
  Receive Date: 20040701
  Receipt Date: 20040611
  Transmission Date: 20050211
  Serious: Yes (Other)
  Sender: FDA-Public Use
  Company Number: USA040668962

PATIENT
  Age: 38 Year
  Sex: Female
  Weight: 31 kg

DRUGS (11)
  1. XIGRIS [Suspect]
     Indication: SEPSIS
     Dosage: 24 UG/KG/HR
     Dates: start: 20040528, end: 20040531
  2. LEVOPHED [Concomitant]
  3. VASOPRESSIN INJECTION [Concomitant]
  4. TPN (TOTAL PARENTERAL NUTRITION) [Concomitant]
  5. EPOGEN [Concomitant]
  6. ZOSYN [Concomitant]
  7. FENTANYL [Concomitant]
  8. ATIVAN [Concomitant]
  9. PEPCID [Concomitant]
  10. DIGOXIN [Concomitant]
  11. IV FLUIDS [Concomitant]

REACTIONS (5)
  - BLOOD PRESSURE DECREASED [None]
  - CATHETER SITE HAEMORRHAGE [None]
  - HEART RATE DECREASED [None]
  - INTRA-ABDOMINAL HAEMORRHAGE [None]
  - VAGINAL HAEMORRHAGE [None]
